FAERS Safety Report 5304656-0 (Version None)
Quarter: 2007Q2

REPORT INFORMATION
  Report Type: 
  Country: None (occurrence: None)
  Receive Date: 20070423
  Receipt Date: 20070412
  Transmission Date: 20071010
  Serious: Yes (Hospitalization)
  Sender: FDA-Public Use
  Company Number: US-MERCK-0703USA04146

PATIENT
  Age: 8 Year
  Sex: Female

DRUGS (5)
  1. SINGULAIR [Suspect]
     Indication: RHINITIS ALLERGIC
     Route: 048
     Dates: end: 20070301
  2. SINGULAIR [Suspect]
     Route: 048
     Dates: start: 20070301
  3. FLOVENT [Concomitant]
     Route: 065
  4. ALLERGENIC EXTRACT [Concomitant]
     Route: 065
  5. IMMUNOTHERAPY (UNSPECIFIED) [Concomitant]
     Route: 065

REACTIONS (2)
  - DEHYDRATION [None]
  - VOMITING [None]
